FAERS Safety Report 9459000 (Version 1)
Quarter: 2013Q3

REPORT INFORMATION
  Report Type: Spontaneous
  Country: US (occurrence: US)
  Receive Date: 20130814
  Receipt Date: 20130814
  Transmission Date: 20140515
  Serious: No
  Sender: FDA-Public Use
  Company Number: US-009507513-1308USA000245

PATIENT
  Sex: Female

DRUGS (4)
  1. SIMVASTATIN [Suspect]
     Dosage: UNK
  2. ZOCOR [Suspect]
     Route: 048
  3. CELEBREX [Concomitant]
  4. NEURONTIN [Concomitant]

REACTIONS (2)
  - Dizziness [Unknown]
  - Expired drug administered [Unknown]
